FAERS Safety Report 8138224-2 (Version None)
Quarter: 2012Q1

REPORT INFORMATION
  Report Type: 
  Country: None (occurrence: None)
  Receive Date: 20120215
  Receipt Date: 20120207
  Transmission Date: 20120608
  Serious: Yes (Other)
  Sender: FDA-Public Use
  Company Number: PHHY2012JP006964

PATIENT
  Sex: Male
  Weight: 60 kg

DRUGS (1)
  1. TEGRETOL [Suspect]
     Indication: EPILEPSY
     Dosage: 200MG DAILY
     Route: 048
     Dates: start: 20090226, end: 20100902

REACTIONS (4)
  - ECZEMA [None]
  - ERYTHEMA [None]
  - TOXIC SKIN ERUPTION [None]
  - RASH [None]
